FAERS Safety Report 8185210-2 (Version None)
Quarter: 2012Q1

REPORT INFORMATION
  Report Type: 
  Country: None (occurrence: None)
  Receive Date: 20120305
  Receipt Date: 20120227
  Transmission Date: 20120608
  Serious: Yes (Disabling)
  Sender: FDA-Public Use
  Company Number: PHHY2012GB016587

PATIENT
  Age: 47 Year
  Sex: Male
  Weight: 96.9 kg

DRUGS (28)
  1. ASPIRIN [Concomitant]
     Dosage: UNK
     Dates: start: 20111213, end: 20120208
  2. BETAMETHASONE VALERATE [Concomitant]
     Dosage: UNK
     Dates: start: 20120117, end: 20120214
  3. OMEPRAZOLE [Concomitant]
     Dosage: UNK
     Dates: start: 20111213, end: 20120208
  4. ACETAMINOPHEN [Concomitant]
     Dosage: UNK
     Dates: start: 20111213, end: 20120208
  5. SIMVASTATIN [Concomitant]
     Dosage: UNK
     Dates: start: 20111110, end: 20111208
  6. SIMVASTATIN [Concomitant]
     Dosage: UNK
     Dates: start: 20111213, end: 20120208
  7. BISOPROLOL FUMARATE [Concomitant]
     Dosage: UNK
     Dates: start: 20111110, end: 20111208
  8. GLYCEROL 2.6% [Concomitant]
     Dosage: UNK
     Dates: start: 20111207, end: 20111209
  9. OMEPRAZOLE [Concomitant]
     Dosage: UNK
     Dates: start: 20111110, end: 20111208
  10. NITROGLYCERIN [Concomitant]
     Dosage: UNK
     Dates: start: 20111213, end: 20120208
  11. OTOMIZE [Concomitant]
     Dosage: UNK
     Dates: start: 20111114, end: 20111205
  12. SENNA [Concomitant]
     Dosage: UNK
     Dates: start: 20111130, end: 20111228
  13. BENDROFLUMETHIAZIDE [Concomitant]
     Dosage: UNK
     Dates: start: 20111213, end: 20120208
  14. BISOPROLOL FUMARATE [Concomitant]
     Dosage: UNK
     Dates: start: 20111213, end: 20120208
  15. NITROGLYCERIN [Concomitant]
     Dosage: UNK
     Dates: start: 20111025, end: 20111209
  16. CINCHOCAINE [Concomitant]
     Dosage: UNK
     Dates: start: 20111125, end: 20111205
  17. PROCTOSEDYL [Concomitant]
     Dosage: UNK
     Dates: start: 20111025, end: 20111209
  18. RAMIPRIL [Concomitant]
     Dosage: UNK
     Dates: start: 20111110, end: 20111208
  19. AMLODIPINE [Suspect]
     Dosage: UNK
     Dates: start: 20120117, end: 20120207
  20. ASPIRIN [Concomitant]
     Dosage: UNK
     Dates: start: 20111110, end: 20111208
  21. VALPROATE SODIUM [Concomitant]
     Dosage: UNK
     Dates: start: 20111213, end: 20120208
  22. ACETAMINOPHEN [Concomitant]
     Dosage: UNK
     Dates: start: 20111110, end: 20111208
  23. BENDROFLUMETHIAZIDE [Concomitant]
     Dosage: UNK
     Dates: start: 20111110, end: 20111208
  24. LAXIDO [Concomitant]
     Dosage: UNK
     Dates: start: 20111213, end: 20120208
  25. PROCTOSEDYL [Concomitant]
     Dosage: UNK
     Dates: start: 20111213, end: 20120208
  26. VALPROATE SODIUM [Concomitant]
     Dosage: UNK
     Dates: start: 20111110, end: 20111208
  27. LAXIDO [Concomitant]
     Dosage: UNK
     Dates: start: 20111110, end: 20111208
  28. RAMIPRIL [Concomitant]
     Dosage: UNK
     Dates: start: 20111213, end: 20120208

REACTIONS (1)
  - EPILEPSY [None]
